FAERS Safety Report 4519280-7 (Version None)
Quarter: 2004Q4

REPORT INFORMATION
  Report Type: 
  Country: None (occurrence: None)
  Receive Date: 20041201
  Receipt Date: 20041115
  Transmission Date: 20050328
  Serious: Yes (Other)
  Sender: FDA-Public Use
  Company Number: 2004241256AU

PATIENT
  Sex: Female
  Weight: 53 kg

DRUGS (17)
  1. ALPRAZOLAM [Suspect]
     Indication: ANXIETY
     Dosage: 4 MG/DAY (2 MG, BID), ORAL
     Route: 048
  2. ESTRIOL (ESTRIOL) [Concomitant]
  3. ANTAZOLINE (ANTAZOLINE) [Concomitant]
  4. CLOTRIMAZOLE (CLOTRIMAZOLE) [Concomitant]
  5. CHLORAMPENICOL (CHLORAMPENICOL) [Concomitant]
  6. MEBEVERINE HYDROCHLORIDE (MEBEVERINE HYDROCHLORIDE) [Concomitant]
  7. BETAMETHASONE DIPROPIONATE (BETAMETHASONE DIPROPIONATE) [Concomitant]
  8. GAVISCON LIQUID ^FERRING^ (ALUMINIUM HYDROXIDE, CALCIUM CARBONATE, SOD [Concomitant]
  9. INDAPAMIDE HEMIHYDRATE (INDAPAMIDE HEMIHYDRATE) [Concomitant]
  10. ESOMEPRAZOLE (ESOMEPRAZOLE) [Concomitant]
  11. NYSTATIN [Concomitant]
  12. ACETAMINOPHEN [Concomitant]
  13. CARMELLOSE SODIUM (CARMELLOSE SODIUM) [Concomitant]
  14. PROCHLORPERAZINE MALEATE (PROCHLORPERAZINE MALEATE) [Concomitant]
  15. URAL (CITRIC ACID, SODIUM BICARBONATE, SODIUM CITRATE, TARTARIC ACID) [Concomitant]
  16. SIMVASTATIN [Concomitant]
  17. INFUENZA VIRUS VACCINE POLYVALENT (INFLUENZA VIRUS VACCINE POLYVALENT) [Concomitant]

REACTIONS (3)
  - CATARACT OPERATION [None]
  - EYE IRRITATION [None]
  - EYE PRURITUS [None]
